FAERS Safety Report 24964907 (Version 4)
Quarter: 2025Q2

REPORT INFORMATION
  Report Type: Spontaneous
  Country: TR (occurrence: TR)
  Receive Date: 20250213
  Receipt Date: 20250407
  Transmission Date: 20250716
  Serious: Yes (Hospitalization, Other)
  Sender: SANOFI AVENTIS
  Company Number: TR-SA-2025SA030035

PATIENT
  Age: 49 Year
  Sex: Male

DRUGS (1)
  1. APIDRA [Suspect]
     Active Substance: INSULIN GLULISINE
     Indication: Type 1 diabetes mellitus
     Dosage: 6 IU, QD (DAILY IN MORNING)
     Route: 058
     Dates: start: 20250110

REACTIONS (4)
  - Coma [Recovered/Resolved]
  - Blood glucose increased [Recovered/Resolved]
  - Blood gases abnormal [Unknown]
  - Device delivery system issue [Unknown]

NARRATIVE: CASE EVENT DATE: 20250101
